FAERS Safety Report 9897663 (Version 1)
Quarter: 2014Q1

REPORT INFORMATION
  Report Type: Spontaneous
  Country: US (occurrence: US)
  Receive Date: 20140214
  Receipt Date: 20140214
  Transmission Date: 20141002
  Serious: No
  Sender: FDA-Public Use
  Company Number: US-TEVA-462282USA

PATIENT
  Age: 22 Year
  Sex: Female

DRUGS (2)
  1. PLAN B ONE-STEP [Suspect]
  2. SOLODYN [Concomitant]

REACTIONS (6)
  - Muscle spasms [Unknown]
  - Menstruation delayed [Unknown]
  - Abdominal pain upper [Unknown]
  - Abdominal pain lower [Unknown]
  - Dysmenorrhoea [Unknown]
  - Product blister packaging issue [Unknown]
